FAERS Safety Report 23807702 (Version 1)
Quarter: 2024Q2

REPORT INFORMATION
  Report Type: Spontaneous
  Country: US (occurrence: US)
  Receive Date: 20240502
  Receipt Date: 20240502
  Transmission Date: 20240716
  Serious: No
  Sender: FDA-Public Use
  Company Number: US-VIIV HEALTHCARE LIMITED-US2024AMR050959

PATIENT
  Sex: Female

DRUGS (2)
  1. RILPIVIRINE [Suspect]
     Active Substance: RILPIVIRINE
     Indication: HIV infection
     Dosage: UNK UNK, Q2M,600MG CABOTEGRAVIR 900MG RILPIVIRINE
     Route: 030
     Dates: start: 202211, end: 202401
  2. CABOTEGRAVIR [Suspect]
     Active Substance: CABOTEGRAVIR
     Indication: HIV infection
     Dosage: UNK UNK, Q2M,600MG CABOTEGRAVIR 900MG RILPIVIRINE
     Route: 030
     Dates: start: 202211, end: 202401

REACTIONS (2)
  - CD4 lymphocytes increased [Recovered/Resolved]
  - T-lymphocyte count increased [Recovered/Resolved]
